FAERS Safety Report 22116604 (Version 1)
Quarter: 2023Q1

REPORT INFORMATION
  Report Type: Spontaneous
  Country: US (occurrence: US)
  Receive Date: 20230320
  Receipt Date: 20230320
  Transmission Date: 20230418
  Serious: No
  Sender: FDA-Public Use
  Company Number: US-ELI_LILLY_AND_COMPANY-US202303005372

PATIENT
  Age: 43 Year
  Sex: Female

DRUGS (2)
  1. MOUNJARO [Suspect]
     Active Substance: TIRZEPATIDE
     Indication: Leptin receptor deficiency
     Dosage: UNK UNK, UNKNOWN
     Route: 065
  2. MOUNJARO [Suspect]
     Active Substance: TIRZEPATIDE
     Indication: Leptin receptor deficiency
     Dosage: 12.5 MG, UNKNOWN
     Route: 065

REACTIONS (11)
  - Panic attack [Unknown]
  - Heart rate increased [Unknown]
  - Dizziness [Unknown]
  - Feeling abnormal [Unknown]
  - Blood pressure increased [Unknown]
  - Anxiety [Unknown]
  - Depressed mood [Unknown]
  - Blood glucose decreased [Unknown]
  - Fatigue [Unknown]
  - Sluggishness [Unknown]
  - Off label use [Unknown]

NARRATIVE: CASE EVENT DATE: 20230307
